FAERS Safety Report 8786291 (Version 4)
Quarter: 2012Q4

REPORT INFORMATION
  Report Type: Report from Study
  Country: JP (occurrence: JP)
  Receive Date: 20120914
  Receipt Date: 20121211
  Transmission Date: 20130627
  Serious: Yes (Life-Threatening, Other)
  Sender: FDA-Public Use
  Company Number: JP-PFIZER INC-2012225423

PATIENT
  Age: 88 Year
  Sex: Male
  Weight: 46 kg

DRUGS (3)
  1. NOVASTAN [Suspect]
     Dosage: 10 mg, 2x/day
     Route: 041
     Dates: start: 20120126
  2. ANPLAG [Concomitant]
     Indication: ARTERIOSCLEROSIS OBLITERANS
     Dosage: 300 mg, daily
     Route: 048
     Dates: start: 20110916
  3. CILOSTAZOL [Concomitant]
     Dosage: UNK
     Route: 048

REACTIONS (2)
  - Peripheral ischaemia [Recovering/Resolving]
  - Ileus [Recovered/Resolved]
